FAERS Safety Report 7072663-6 (Version None)
Quarter: 2010Q4

REPORT INFORMATION
  Report Type: 
  Country: None (occurrence: None)
  Receive Date: 20101029
  Receipt Date: 20100225
  Transmission Date: 20110411
  Serious: No
  Sender: FDA-Public Use
  Company Number: A0846677A

PATIENT
  Age: 74 Year
  Sex: Female

DRUGS (10)
  1. ADVAIR DISKUS 100/50 [Suspect]
     Indication: ASTHMA
     Dosage: 1PUFF TWICE PER DAY
     Route: 055
     Dates: start: 20091223
  2. ALBUTEROL [Concomitant]
  3. MACRODANTIN [Concomitant]
  4. POTASSIUM CHLORIDE [Concomitant]
  5. CALCIUM [Concomitant]
  6. DITROPAN [Concomitant]
  7. ZYRTEC [Concomitant]
  8. WELLBUTRIN XL [Concomitant]
  9. REMERON [Concomitant]
  10. AMBIEN [Concomitant]

REACTIONS (4)
  - ABDOMINAL DISTENSION [None]
  - CONSTIPATION [None]
  - ODYNOPHAGIA [None]
  - ORAL PAIN [None]
